FAERS Safety Report 12115629 (Version 1)
Quarter: 2016Q1

REPORT INFORMATION
  Report Type: Report from Study
  Country: UA (occurrence: UA)
  Receive Date: 20160225
  Receipt Date: 20160225
  Transmission Date: 20160526
  Serious: Yes (Death, Hospitalization, Other)
  Sender: FDA-Public Use
  Company Number: UA-GLAXOSMITHKLINE-UA2016009016

PATIENT
  Age: 45 Year
  Sex: Male
  Weight: 101 kg

DRUGS (20)
  1. BLINDED PLACEBO [Suspect]
     Active Substance: INVESTIGATIONAL PRODUCT
     Indication: SYSTEMIC LUPUS ERYTHEMATOSUS
     Dosage: UNK UNK, CYC
     Route: 042
     Dates: start: 20150911
  2. MELDONIUM [Concomitant]
     Indication: PNEUMONIA
     Dosage: 0.5 G, QD
     Route: 042
     Dates: start: 20160120, end: 20160121
  3. THIOTRIAZOLINE [Concomitant]
     Indication: PNEUMONIA
     Dosage: 100 MG, QD
     Route: 042
     Dates: start: 20160120, end: 20160121
  4. RIMANTADINE [Concomitant]
     Active Substance: RIMANTADINE HYDROCHLORIDE
     Indication: PNEUMONIA
     Dosage: 100 MG, TID
     Route: 048
     Dates: start: 20160120, end: 20160121
  5. FUROSEMIDE. [Concomitant]
     Active Substance: FUROSEMIDE
     Indication: PNEUMONIA
     Dosage: 20 MG, TID
     Route: 042
     Dates: start: 20160120, end: 20160121
  6. MEROPENEM. [Concomitant]
     Active Substance: MEROPENEM
     Indication: PNEUMONIA
     Dosage: 1 G, TID
     Route: 042
     Dates: start: 20160121, end: 20160122
  7. NOREPINEPHRINE [Concomitant]
     Active Substance: NOREPINEPHRINE\NOREPINEPHRINE BITARTRATE
     Indication: RESUSCITATION
     Dosage: 1 MG, SINGLE
     Route: 042
     Dates: start: 20160122, end: 20160122
  8. BLINDED BELIMUMAB [Suspect]
     Active Substance: BELIMUMAB
     Indication: SYSTEMIC LUPUS ERYTHEMATOSUS
     Dosage: UNK UNK, CYC
     Route: 042
     Dates: start: 20150911
  9. FENSPIRIDE HYDROCHLORIDE [Concomitant]
     Active Substance: FENSPIRIDE HYDROCHLORIDE
     Indication: PNEUMONIA
     Dosage: 80 MG, TID
     Route: 048
     Dates: start: 20160120, end: 20160121
  10. ANAFERON [Concomitant]
     Indication: PNEUMONIA
     Dosage: 1 DF, TID
     Route: 048
     Dates: start: 20160120, end: 20160121
  11. DEXAMETHASONE. [Concomitant]
     Active Substance: DEXAMETHASONE
     Indication: PNEUMONIA
     Dosage: 8 MG, QID
     Route: 042
     Dates: start: 20160120, end: 20160122
  12. SULPHOCAMPHORIC ACID [Concomitant]
     Indication: PNEUMONIA
     Dosage: 0.2 G, BID
     Route: 030
     Dates: start: 20160120, end: 20160121
  13. SUXAMETHONIUM IODIDE [Concomitant]
     Active Substance: SUXAMETHONIUM IODIDE
     Indication: HYPOTONIA
     Dosage: 200 MG, SINGLE
     Route: 042
     Dates: start: 20160121, end: 20160121
  14. CEFTRIAXONE. [Concomitant]
     Active Substance: CEFTRIAXONE
     Indication: PNEUMONIA
     Dosage: 1 G, BID
     Route: 042
     Dates: start: 20160120, end: 20160120
  15. TORASEMIDE [Concomitant]
     Active Substance: TORSEMIDE
     Indication: PNEUMONIA
     Dosage: 10 MG, BID
     Route: 048
     Dates: start: 20160121, end: 20160121
  16. PIPECURONIUM BROMIDE. [Concomitant]
     Active Substance: PIPECURONIUM BROMIDE
     Indication: ANAESTHESIA
     Route: 042
     Dates: start: 20160121, end: 20160121
  17. ACETYLCYSTEINE. [Concomitant]
     Active Substance: ACETYLCYSTEINE
     Indication: PNEUMONIA
     Dosage: 300 MG, BID
     Route: 042
     Dates: start: 20160120, end: 20160121
  18. ATROPINE. [Concomitant]
     Active Substance: ATROPINE
     Indication: RESUSCITATION
     Dosage: 1 MG, SINGLE
     Route: 042
     Dates: start: 20160122, end: 20160122
  19. OSELTAMIVIR [Concomitant]
     Active Substance: OSELTAMIVIR
     Indication: PNEUMONIA
     Dosage: 75 MG, QD
     Route: 048
     Dates: start: 20160121, end: 20160121
  20. LEVOFLOXACINE [Concomitant]
     Active Substance: LEVOFLOXACIN
     Indication: PNEUMONIA
     Dosage: 0.75 G, QD
     Route: 042
     Dates: start: 20160120, end: 20160121

REACTIONS (1)
  - Pneumonia [Fatal]

NARRATIVE: CASE EVENT DATE: 20160120
